FAERS Safety Report 7428957-5 (Version None)
Quarter: 2011Q2

REPORT INFORMATION
  Report Type: 
  Country: None (occurrence: None)
  Receive Date: 20110412
  Receipt Date: 20110328
  Transmission Date: 20111010
  Serious: Yes (Other)
  Sender: FDA-Public Use
  Company Number: 2011PV000016

PATIENT
  Age: 68 Year
  Sex: Female

DRUGS (1)
  1. DEPOCYT [Suspect]
     Indication: CHRONIC LYMPHOCYTIC LEUKAEMIA

REACTIONS (2)
  - PARAPLEGIA [None]
  - INTRACRANIAL PRESSURE INCREASED [None]
